FAERS Safety Report 10974375 (Version 1)
Quarter: 2015Q1

REPORT INFORMATION
  Report Type: Spontaneous
  Country: US (occurrence: None)
  Receive Date: 20150331
  Receipt Date: 20150331
  Transmission Date: 20150721
  Serious: No
  Sender: FDA-Public Use
  Company Number: None

PATIENT
  Age: 36 Year
  Sex: Female

DRUGS (8)
  1. NORTRYPTYLIN [Concomitant]
  2. TROSPIUM [Concomitant]
     Active Substance: TROSPIUM
  3. AMPYRA [Suspect]
     Active Substance: DALFAMPRIDINE
     Indication: MULTIPLE SCLEROSIS
     Route: 048
     Dates: start: 20130402
  4. LISINOPRIL. [Concomitant]
     Active Substance: LISINOPRIL
  5. COPAXONE [Concomitant]
     Active Substance: GLATIRAMER ACETATE
  6. SPRINTEC [Concomitant]
     Active Substance: ETHINYL ESTRADIOL\NORGESTIMATE
  7. INSULIN [Concomitant]
     Active Substance: INSULIN NOS
  8. LOVASTATIN. [Concomitant]
     Active Substance: LOVASTATIN

REACTIONS (1)
  - Laboratory test abnormal [None]

NARRATIVE: CASE EVENT DATE: 20141124
